FAERS Safety Report 18186440 (Version 6)
Quarter: 2021Q3

REPORT INFORMATION
  Report Type: Report from Study
  Country: BR (occurrence: BR)
  Receive Date: 20200824
  Receipt Date: 20210918
  Transmission Date: 20211014
  Serious: Yes (Disabling, Other)
  Sender: FDA-Public Use
  Company Number: PHHY2019BR104086

PATIENT
  Age: 70 Year
  Sex: Female

DRUGS (9)
  1. COSENTYX [Suspect]
     Active Substance: SECUKINUMAB
     Dosage: UNK, UNKNOWN
     Route: 065
     Dates: start: 202012
  2. COSENTYX [Suspect]
     Active Substance: SECUKINUMAB
     Dosage: 150 MG, UNKNOWN (LAST APPLICATION)
     Route: 065
     Dates: start: 20210812
  3. COSENTYX [Suspect]
     Active Substance: SECUKINUMAB
     Dosage: UNK, UNKNOWN
     Route: 065
     Dates: start: 20180728
  4. COSENTYX [Suspect]
     Active Substance: SECUKINUMAB
     Indication: ANKYLOSING SPONDYLITIS
     Dosage: UNK, UNKNOWN
     Route: 065
     Dates: start: 20180705
  5. COSENTYX [Suspect]
     Active Substance: SECUKINUMAB
     Dosage: 150 MG, UNKNOWN
     Route: 065
     Dates: start: 201910
  6. COSENTYX [Suspect]
     Active Substance: SECUKINUMAB
     Dosage: 150 MG, UNKNOWN
     Route: 065
  7. DEFLAZACORT [Concomitant]
     Active Substance: DEFLAZACORT
     Indication: PRODUCT USED FOR UNKNOWN INDICATION
     Dosage: UNK, UNKNOWN
     Route: 065
  8. TECNOMET [Concomitant]
     Active Substance: METHOTREXATE
     Indication: PRODUCT USED FOR UNKNOWN INDICATION
     Dosage: UNK, UNKNOWN
     Route: 065
  9. COSENTYX [Suspect]
     Active Substance: SECUKINUMAB
     Dosage: UNK, UNKNOWN
     Route: 065
     Dates: start: 20190905

REACTIONS (29)
  - Peripheral swelling [Not Recovered/Not Resolved]
  - Decreased activity [Not Recovered/Not Resolved]
  - Gait disturbance [Recovered/Resolved]
  - Abdominal discomfort [Not Recovered/Not Resolved]
  - Crying [Unknown]
  - Angina pectoris [Unknown]
  - Drug resistance [Recovered/Resolved]
  - Headache [Not Recovered/Not Resolved]
  - Therapeutic product effect decreased [Not Recovered/Not Resolved]
  - Pain in extremity [Not Recovered/Not Resolved]
  - Expired product administered [Unknown]
  - Palpitations [Unknown]
  - Self esteem decreased [Not Recovered/Not Resolved]
  - Product availability issue [Unknown]
  - Discomfort [Unknown]
  - Nervousness [Unknown]
  - Gait disturbance [Unknown]
  - Insomnia [Not Recovered/Not Resolved]
  - Product substitution issue [Unknown]
  - Inappropriate schedule of product administration [Unknown]
  - Movement disorder [Unknown]
  - Arrhythmia [Unknown]
  - Pain [Recovered/Resolved with Sequelae]
  - Pain [Recovered/Resolved]
  - Fatigue [Unknown]
  - Hypokinesia [Unknown]
  - Joint stiffness [Not Recovered/Not Resolved]
  - Asthenia [Not Recovered/Not Resolved]
  - Arthralgia [Unknown]

NARRATIVE: CASE EVENT DATE: 20190912
